FAERS Safety Report 8994398 (Version 1)
Quarter: 2013Q1

REPORT INFORMATION
  Report Type: Spontaneous
  Country: US (occurrence: US)
  Receive Date: 20130102
  Receipt Date: 20130102
  Transmission Date: 20140127
  Serious: No
  Sender: FDA-Public Use
  Company Number: US-AMGEN-USASP2012079764

PATIENT
  Age: 61 Year
  Sex: Female

DRUGS (1)
  1. ENBREL [Suspect]
     Indication: PSORIASIS
     Dosage: 50 MG, WEEKLY
     Route: 058
     Dates: start: 20120507

REACTIONS (5)
  - Nausea [Not Recovered/Not Resolved]
  - Influenza like illness [Unknown]
  - Dizziness [Not Recovered/Not Resolved]
  - Feeling cold [Not Recovered/Not Resolved]
  - Back pain [Not Recovered/Not Resolved]
